FAERS Safety Report 7263680-1 (Version None)
Quarter: 2011Q1

REPORT INFORMATION
  Report Type: 
  Country: None (occurrence: None)
  Receive Date: 20110130
  Receipt Date: 20101214
  Transmission Date: 20110831
  Serious: No
  Sender: FDA-Public Use
  Company Number: US-ABBOTT-10P-163-0692019-00

PATIENT
  Age: 24 Year
  Sex: Female
  Weight: 63.56 kg

DRUGS (1)
  1. HUMIRA [Suspect]
     Indication: RHEUMATOID ARTHRITIS
     Dosage: RECIEVED ONLY 1 INJECTION
     Route: 058
     Dates: start: 20101210

REACTIONS (4)
  - NAUSEA [None]
  - FATIGUE [None]
  - HYPERSOMNIA [None]
  - ASTHENIA [None]
